FAERS Safety Report 11091943 (Version 1)
Quarter: 2015Q2

REPORT INFORMATION
  Report Type: Spontaneous
  Country: US (occurrence: US)
  Receive Date: 20150505
  Receipt Date: 20150505
  Transmission Date: 20150821
  Serious: No
  Sender: FDA-Public Use
  Company Number: US-BAYER-2015-183822

PATIENT
  Age: 62 Year
  Sex: Female
  Weight: 82 kg

DRUGS (10)
  1. FISH OIL [Concomitant]
     Active Substance: FISH OIL
     Dosage: UNK
  2. ALEVE COLD + SINUS [Concomitant]
     Active Substance: NAPROXEN SODIUM\PSEUDOEPHEDRINE HYDROCHLORIDE
     Dosage: UNK
  3. CHLOROQUINE [Concomitant]
     Active Substance: CHLOROQUINE\CHLOROQUINE PHOSPHATE
     Dosage: UNK
  4. SINGULAIR [Concomitant]
     Active Substance: MONTELUKAST SODIUM
     Dosage: UNK
  5. LIPITOR [Concomitant]
     Active Substance: ATORVASTATIN CALCIUM
     Dosage: UNK
  6. CENTRUM SILVER [Concomitant]
     Active Substance: VITAMINS
     Dosage: UNK
  7. INSULIN [INSULIN] [Concomitant]
     Active Substance: INSULIN NOS
     Dosage: UNK
  8. LOSARTAN [Concomitant]
     Active Substance: LOSARTAN
     Dosage: UNK
  9. CLARITIN-D 24 HOUR [Suspect]
     Active Substance: LORATADINE\PSEUDOEPHEDRINE SULFATE
     Indication: SEASONAL ALLERGY
     Dosage: 1 DOSE, QD
     Route: 048
     Dates: start: 20150421, end: 20150423
  10. ASPIRIN [ACETYLSALICYLIC ACID] [Concomitant]
     Dosage: UNK

REACTIONS (1)
  - Drug ineffective [Unknown]

NARRATIVE: CASE EVENT DATE: 20150421
